FAERS Safety Report 7340577-X (Version None)
Quarter: 2011Q1

REPORT INFORMATION
  Report Type: 
  Country: None (occurrence: None)
  Receive Date: 20110309
  Receipt Date: 20110224
  Transmission Date: 20110831
  Serious: Yes (Hospitalization)
  Sender: FDA-Public Use
  Company Number: PHHY2011RO15403

PATIENT
  Sex: Female

DRUGS (5)
  1. SINTROM [Concomitant]
  2. ZOMETA [Suspect]
     Indication: OSTEOPOROSIS
     Dosage: 4 MG, PER 4 WEEKS
  3. NEORECORMON [Concomitant]
  4. PREDUCTAL [Concomitant]
  5. NEBIVOLOL HCL [Concomitant]

REACTIONS (8)
  - PAIN [None]
  - APHAGIA [None]
  - SWELLING [None]
  - OSTEONECROSIS OF JAW [None]
  - STOMATITIS [None]
  - OSTEOMYELITIS [None]
  - BONE LESION [None]
  - SOFT TISSUE INFECTION [None]
